FAERS Safety Report 17676258 (Version 2)
Quarter: 2020Q2

REPORT INFORMATION
  Report Type: Report from Study
  Country: RO (occurrence: RO)
  Receive Date: 20200416
  Receipt Date: 20200504
  Transmission Date: 20200714
  Serious: Yes (Disabling)
  Sender: FDA-Public Use
  Company Number: RO-UCBSA-2020015336

PATIENT
  Age: 3 Year
  Sex: Female
  Weight: 13 kg

DRUGS (5)
  1. LACOSAMIDE EP [Suspect]
     Active Substance: LACOSAMIDE
     Indication: EPILEPSY
     Dosage: 6.5 MILLILITER, 2X/DAY (BID)
     Route: 048
     Dates: start: 20200406, end: 20200409
  2. LAMOTRIGINE. [Concomitant]
     Active Substance: LAMOTRIGINE
     Indication: EPILEPSY
     Dosage: 37.5 MILLIGRAM, 2X/DAY (BID)
     Route: 048
     Dates: start: 20180801
  3. LACOSAMIDE EP [Suspect]
     Active Substance: LACOSAMIDE
     Indication: PARTIAL SEIZURES
  4. CLONAZEPAM. [Concomitant]
     Active Substance: CLONAZEPAM
     Indication: EPILEPSY
     Dosage: 0.75 MILLIGRAM PER DAY
     Route: 048
     Dates: start: 20190501
  5. CARBAMAZEPINE. [Concomitant]
     Active Substance: CARBAMAZEPINE
     Indication: EPILEPSY
     Dosage: 7 MILLILITER, 3X/DAY (TID)
     Route: 048
     Dates: start: 20180801

REACTIONS (2)
  - Motor dysfunction [Recovered/Resolved]
  - Cognitive disorder [Recovered/Resolved]

NARRATIVE: CASE EVENT DATE: 20200408
